FAERS Safety Report 4992087-2 (Version None)
Quarter: 2006Q2

REPORT INFORMATION
  Report Type: 
  Country: None (occurrence: None)
  Receive Date: 20060504
  Receipt Date: 20060425
  Transmission Date: 20061013
  Serious: Yes (Hospitalization)
  Sender: FDA-Public Use
  Company Number: US-MERCK-0604USA03737

PATIENT
  Age: 67 Year
  Sex: Female

DRUGS (3)
  1. VYTORIN [Suspect]
     Indication: BLOOD CHOLESTEROL INCREASED
     Route: 048
     Dates: start: 20050101, end: 20060422
  2. CARDIZEM [Concomitant]
     Route: 065
  3. ALTACE [Concomitant]
     Route: 065

REACTIONS (3)
  - PAIN [None]
  - POLLAKIURIA [None]
  - URETHRAL DISORDER [None]
